FAERS Safety Report 7469901-4 (Version None)
Quarter: 2011Q2

REPORT INFORMATION
  Report Type: 
  Country: None (occurrence: None)
  Receive Date: 20110510
  Receipt Date: 20110407
  Transmission Date: 20111010
  Serious: Yes (Other)
  Sender: FDA-Public Use
  Company Number: US-BAYER-201030114NA

PATIENT
  Age: 23 Year
  Sex: Female
  Weight: 89.796 kg

DRUGS (11)
  1. MIDRIN [Concomitant]
     Indication: MIGRAINE
     Dosage: UNK
     Route: 048
     Dates: start: 20060101
  2. XANAX [Concomitant]
  3. YAZ [Suspect]
     Indication: PREMENSTRUAL SYNDROME
     Dosage: UNK
     Dates: start: 20061101, end: 20070801
  4. YAZ [Suspect]
  5. NAPROXEN [Concomitant]
     Dosage: UNK
     Dates: start: 20070815
  6. INDERAL [Concomitant]
  7. TOPAMAX [Concomitant]
  8. PROZAC [Concomitant]
  9. PROPRANOLOL [Concomitant]
     Dosage: UNK
     Route: 048
     Dates: start: 20060101
  10. NAPROXEN [Concomitant]
     Dosage: UNK
     Dates: start: 20061102
  11. TORADOL [Concomitant]

REACTIONS (1)
  - CEREBROVASCULAR ACCIDENT [None]
